FAERS Safety Report 11154988 (Version 1)
Quarter: 2015Q2

REPORT INFORMATION
  Report Type: Spontaneous
  Country: CA (occurrence: CA)
  Receive Date: 20150602
  Receipt Date: 20150602
  Transmission Date: 20150821
  Serious: Yes (Disabling, Other)
  Sender: FDA-Public Use
  Company Number: CA-BAYER-2015-251965

PATIENT
  Age: 49 Year
  Sex: Female

DRUGS (3)
  1. CIPRO XL [Suspect]
     Active Substance: CIPROFLOXACIN\CIPROFLOXACIN HYDROCHLORIDE
     Indication: URINARY TRACT INFECTION
     Dosage: UNK
     Dates: start: 2010
  2. CIPRO XL [Suspect]
     Active Substance: CIPROFLOXACIN\CIPROFLOXACIN HYDROCHLORIDE
     Indication: URINARY TRACT INFECTION
     Dosage: UNK
  3. CIPRO XL [Suspect]
     Active Substance: CIPROFLOXACIN\CIPROFLOXACIN HYDROCHLORIDE
     Indication: URINARY TRACT INFECTION
     Dosage: 500 MG, BID
     Route: 048
     Dates: start: 20150505

REACTIONS (10)
  - Malaise [None]
  - Headache [Not Recovered/Not Resolved]
  - Abasia [None]
  - Fall [None]
  - Weight decreased [Not Recovered/Not Resolved]
  - Decreased appetite [Not Recovered/Not Resolved]
  - Psychotic disorder [None]
  - Tendon disorder [Not Recovered/Not Resolved]
  - Bedridden [None]
  - Illusion [None]

NARRATIVE: CASE EVENT DATE: 2010
